FAERS Safety Report 4433832-4 (Version None)
Quarter: 2004Q3

REPORT INFORMATION
  Report Type: 
  Country: None (occurrence: None)
  Receive Date: 20040825
  Receipt Date: 20040810
  Transmission Date: 20050211
  Serious: Yes (Hospitalization, Other)
  Sender: FDA-Public Use
  Company Number: USA040875205

PATIENT
  Age: 77 Year
  Sex: Female

DRUGS (2)
  1. FORTEO [Suspect]
     Indication: OSTEOPOROSIS
  2. CORTISONE [Concomitant]

REACTIONS (4)
  - DEVICE FAILURE [None]
  - FALL [None]
  - PATELLA FRACTURE [None]
  - PHARMACEUTICAL PRODUCT COMPLAINT [None]
